FAERS Safety Report 6828055-5 (Version None)
Quarter: 2010Q3

REPORT INFORMATION
  Report Type: 
  Country: None (occurrence: None)
  Receive Date: 20100709
  Receipt Date: 20100702
  Transmission Date: 20110219
  Serious: Yes (Hospitalization)
  Sender: FDA-Public Use
  Company Number: B0663556A

PATIENT
  Sex: Male

DRUGS (4)
  1. DEROXAT [Suspect]
     Indication: MAJOR DEPRESSION
     Dosage: 20MG PER DAY
     Route: 048
     Dates: end: 20100604
  2. BIPRETERAX [Suspect]
     Dosage: 2UNIT PER DAY
     Route: 048
     Dates: end: 20100604
  3. ASPEGIC 1000 [Concomitant]
     Dosage: 250MG PER DAY
     Route: 065
  4. TAHOR [Concomitant]
     Dosage: 80MG PER DAY
     Route: 065

REACTIONS (4)
  - BALANCE DISORDER [None]
  - GAIT DISTURBANCE [None]
  - GENERAL PHYSICAL HEALTH DETERIORATION [None]
  - HYPONATRAEMIA [None]
